FAERS Safety Report 9255180 (Version 2)
Quarter: 2013Q2

REPORT INFORMATION
  Report Type: Report from Study
  Country: US (occurrence: US)
  Receive Date: 20130425
  Receipt Date: 20130513
  Transmission Date: 20140414
  Serious: Yes (Hospitalization, Disabling)
  Sender: FDA-Public Use
  Company Number: US-BAYER-2013-025795

PATIENT
  Age: 83 Year
  Sex: Male

DRUGS (5)
  1. STIVARGA [Suspect]
     Indication: COLON CANCER
     Dosage: 1 TABLET DAILY 1ST WEEK, 2 TABLETS DAILY 2ND WEEK, 3 TABLETS DAILY 3RD WEEK THEN 7 DAYS OFF
     Route: 048
     Dates: start: 20130222, end: 20130402
  2. STIVARGA [Suspect]
     Indication: COLON CANCER
     Dosage: 40 MG, 4 TABLETS DAILY
     Route: 048
     Dates: start: 20130222, end: 20130402
  3. STIVARGA [Suspect]
     Indication: COLON CANCER
     Dosage: 120 MG, QD
     Route: 048
     Dates: end: 20130430
  4. STIVARGA [Suspect]
     Indication: COLON CANCER
     Dosage: 40 MG, QD
     Route: 048
  5. IRON [Concomitant]
     Indication: MINERAL SUPPLEMENTATION
     Route: 042

REACTIONS (19)
  - Abasia [None]
  - Dizziness [Recovered/Resolved]
  - Nausea [None]
  - Fatigue [None]
  - Dehydration [Recovered/Resolved]
  - Vomiting [Recovered/Resolved]
  - Muscle spasms [None]
  - Dysphonia [Not Recovered/Not Resolved]
  - Tongue ulceration [Not Recovered/Not Resolved]
  - Pain in extremity [None]
  - Oral pain [None]
  - Pruritus [None]
  - Muscle spasms [None]
  - Urine flow decreased [None]
  - Decreased appetite [None]
  - Pain [None]
  - Adverse drug reaction [None]
  - Diarrhoea [None]
  - Quality of life decreased [None]
